FAERS Safety Report 6675331-5 (Version None)
Quarter: 2010Q2

REPORT INFORMATION
  Report Type: 
  Country: None (occurrence: None)
  Receive Date: 20100409
  Receipt Date: 20100319
  Transmission Date: 20101027
  Serious: No
  Sender: FDA-Public Use
  Company Number: A0843887A

PATIENT
  Age: 57 Year
  Sex: Female

DRUGS (13)
  1. TYKERB [Suspect]
     Indication: BREAST CANCER
     Dosage: 1250MG PER DAY
     Route: 048
     Dates: start: 20100204
  2. XELODA [Suspect]
     Indication: BREAST CANCER
     Dosage: 1500MG TWICE PER DAY
     Route: 048
     Dates: start: 20100225
  3. CYTOMEL [Concomitant]
  4. BENICAR HCT [Concomitant]
  5. LASIX [Concomitant]
  6. MOBIC [Concomitant]
  7. METOPROLOL TARTRATE [Concomitant]
  8. POTASSIUM [Concomitant]
  9. MAGN. OXIDE [Concomitant]
  10. LEVOXYL [Concomitant]
  11. REMERON [Concomitant]
  12. KEPPRA XR [Concomitant]
  13. UNKNOWN MEDICATION [Concomitant]

REACTIONS (8)
  - DIARRHOEA [None]
  - DRY SKIN [None]
  - DYSPEPSIA [None]
  - FATIGUE [None]
  - OEDEMA PERIPHERAL [None]
  - ONYCHOMADESIS [None]
  - RASH [None]
  - SKIN CHAPPED [None]
